FAERS Safety Report 7824752-3 (Version None)
Quarter: 2011Q4

REPORT INFORMATION
  Report Type: 
  Country: None (occurrence: None)
  Receive Date: 20111019
  Receipt Date: 20111012
  Transmission Date: 20120403
  Serious: Yes (Death, Other)
  Sender: FDA-Public Use
  Company Number: PHEH2011US05276

PATIENT
  Sex: Female

DRUGS (33)
  1. PROCRIT [Concomitant]
     Dosage: UNK UKN, UNK
  2. CARAFATE [Concomitant]
     Dosage: 1 G, BID
     Route: 048
  3. GABAPENTIN [Concomitant]
     Dosage: 100 MG, Q4H
     Route: 048
  4. ASPIRIN [Concomitant]
  5. SPIRIVA [Concomitant]
     Dosage: UNK UKN, UNK
  6. LUTEIN [Concomitant]
     Dosage: 20 MG, QD
     Route: 048
  7. NEPHROCAPS [Concomitant]
     Dosage: 1 DF, QD
     Route: 048
  8. ZOFRAN [Concomitant]
     Dosage: 4 MG, Q8H
     Route: 048
  9. CARVEDILOL [Concomitant]
     Dosage: 6.25 MG, BID
     Route: 048
  10. LUCENTIS [Concomitant]
     Dosage: UNK UKN, UNK
  11. FLUTICASONE PROPIONATE [Concomitant]
     Dosage: 50 UG, QD
     Route: 045
  12. ISOSORBIDE MONONITRATE [Concomitant]
     Dosage: 30 MG, QD
     Route: 048
  13. AMIODARONE HCL [Concomitant]
     Dosage: 2 DF, QD
  14. TASIGNA [Suspect]
     Dosage: 200 MG, BID
     Route: 048
  15. COREG [Concomitant]
     Dosage: 10 MG, UNK
  16. LORAZEPAM [Concomitant]
     Dosage: 1 MG, Q3H
     Route: 048
  17. CRESTOR [Concomitant]
     Dosage: 20 MG, QD
  18. OMEPRAZOLE [Concomitant]
  19. NITROGLYCERIN [Concomitant]
     Dosage: 0.4 MG, DAILY
     Route: 060
  20. LISINOPRIL [Concomitant]
     Dosage: 10 MG, QD
     Route: 048
  21. ALBUTEROL SULFATE [Concomitant]
     Dosage: UNK UKN, UNK
  22. ZOSTAVAX [Concomitant]
     Dosage: UNK UKN, UNK
  23. RENEVELA [Concomitant]
     Dosage: UNK UKN, UNK
  24. LIDOCAINE HCL [Concomitant]
     Dosage: UNK UKN, UNK
  25. ZEMPLAR [Concomitant]
     Dosage: 2 UG, QD
     Route: 048
  26. PERCOCET [Concomitant]
     Dosage: UNK UKN, UNK
  27. NEURONTIN [Concomitant]
     Dosage: 100 MG, UNK
  28. RENAGEL [Concomitant]
  29. STOOL SOFTENER [Concomitant]
  30. WARFARIN SODIUM [Concomitant]
  31. FERROUS SULFATE TAB [Concomitant]
     Dosage: 325 MG, BID
     Route: 048
  32. MORPHINE SULFATE [Concomitant]
     Dosage: 20 MG/ML, Q2H
     Route: 048
  33. OXYCONTIN [Concomitant]
     Dosage: 10 MG, Q12H
     Route: 048

REACTIONS (4)
  - DEATH [None]
  - DISEASE PROGRESSION [None]
  - RENAL FAILURE CHRONIC [None]
  - NEPHROGENIC SYSTEMIC FIBROSIS [None]
